FAERS Safety Report 10050852 (Version 1)
Quarter: 2014Q2

REPORT INFORMATION
  Report Type: Spontaneous
  Country: US (occurrence: US)
  Receive Date: 20140401
  Receipt Date: 20140401
  Transmission Date: 20141212
  Serious: No
  Sender: FDA-Public Use
  Company Number: US-PFIZER INC-2014087281

PATIENT
  Sex: 0

DRUGS (6)
  1. ZOLOFT [Suspect]
     Dosage: UNK
     Route: 064
     Dates: start: 2003, end: 2006
  2. SERTRALINE HCL [Suspect]
     Dosage: UNK
     Route: 064
     Dates: start: 2003, end: 2006
  3. NEURONTIN [Concomitant]
     Dosage: UNK
     Route: 064
  4. PRENATAL VITAMINS [Concomitant]
     Dosage: UNK
     Route: 064
  5. DEPAKOTE [Concomitant]
     Dosage: UNK
     Route: 064
  6. KLONOPIN [Concomitant]
     Dosage: UNK
     Route: 064

REACTIONS (2)
  - Maternal exposure during pregnancy [Unknown]
  - Premature baby [Unknown]
